FAERS Safety Report 6125728-7 (Version None)
Quarter: 2009Q1

REPORT INFORMATION
  Report Type: 
  Country: None (occurrence: None)
  Receive Date: 20090320
  Receipt Date: 20090130
  Transmission Date: 20090719
  Serious: Yes (Death)
  Sender: FDA-Public Use
  Company Number: US-TYCO HEALTHCARE/MALLINCKRODT-T200900481

PATIENT
  Age: 37 Year
  Sex: Male

DRUGS (13)
  1. METHADOSE [Suspect]
     Route: 048
  2. BUPROPION HCL [Suspect]
     Route: 048
  3. QUETIAPINE FUMARATE [Suspect]
     Route: 048
  4. BACLOFEN [Suspect]
     Route: 048
  5. PROMETHAZINE [Suspect]
     Route: 048
  6. DULOXETINE HYDROCHLORIDE [Suspect]
     Route: 048
  7. CLONAZEPAM [Suspect]
     Route: 048
  8. ZOLPIDEM [Suspect]
     Route: 048
  9. LITHIUM [Suspect]
     Route: 048
  10. LEVOTHYROXINE [Suspect]
     Route: 048
  11. LAMOTRIGINE [Suspect]
     Route: 048
  12. EFAVIRENZ [Suspect]
     Route: 048
  13. EMTRICITABINE W/TENOFOVIR [Suspect]
     Route: 048

REACTIONS (2)
  - CARDIO-RESPIRATORY ARREST [None]
  - COMPLETED SUICIDE [None]
